FAERS Safety Report 15306085 (Version 5)
Quarter: 2020Q2

REPORT INFORMATION
  Report Type: Spontaneous
  Country: US (occurrence: US)
  Receive Date: 20180822
  Receipt Date: 20200512
  Transmission Date: 20200713
  Serious: Yes (Other)
  Sender: FDA-Public Use
  Company Number: US-PFIZER INC-2018336168

PATIENT
  Age: 62 Year
  Sex: Female
  Weight: 82 kg

DRUGS (24)
  1. DOCETAXEL. [Suspect]
     Active Substance: DOCETAXEL
     Dosage: 88 MG, SINGLE
     Dates: start: 20110427, end: 20110427
  2. PAXIL [Concomitant]
     Active Substance: PAROXETINE HYDROCHLORIDE
     Dosage: UNK
     Dates: start: 2009, end: 201210
  3. ESTRACE [Concomitant]
     Active Substance: ESTRADIOL
     Dosage: UNK
     Dates: start: 2009, end: 2012
  4. TAXOTERE [Suspect]
     Active Substance: DOCETAXEL
     Indication: LIPOSARCOMA
     Dosage: 88-120 MG, CYCLIC (04 CYCLES, EVERY THREE WEEKS)
     Dates: start: 20110216, end: 20110427
  5. TAXOTERE [Suspect]
     Active Substance: DOCETAXEL
     Dosage: 120 MG, SINGLE
     Dates: start: 20110316, end: 20110316
  6. TAXOTERE [Suspect]
     Active Substance: DOCETAXEL
     Dosage: 88 MG, SINGLE
     Dates: start: 20110427, end: 20110427
  7. SYNTHROID [Concomitant]
     Active Substance: LEVOTHYROXINE SODIUM
     Dosage: UNK
     Dates: start: 2009, end: 2012
  8. DOCETAXEL. [Suspect]
     Active Substance: DOCETAXEL
     Indication: LIPOSARCOMA
     Dosage: 88-120 MG, CYCLIC (04 CYCLES, EVERY THREE WEEKS)
     Dates: start: 20110216, end: 20110427
  9. DOCETAXEL SANOFI-AVENTIS [Suspect]
     Active Substance: DOCETAXEL
     Dosage: 88 MG, SINGLE
     Dates: start: 20110406, end: 20110406
  10. DOCETAXEL. [Suspect]
     Active Substance: DOCETAXEL
     Dosage: 120 MG, SINGLE
     Dates: start: 20110316, end: 20110316
  11. DOCETAXEL SANOFI-AVENTIS [Suspect]
     Active Substance: DOCETAXEL
     Dosage: 88 MG, SINGLE
     Dates: start: 20110427, end: 20110427
  12. SYNTHROID [Concomitant]
     Active Substance: LEVOTHYROXINE SODIUM
     Dosage: UNK
  13. ESTRACE [Concomitant]
     Active Substance: ESTRADIOL
     Indication: HORMONE THERAPY
     Dosage: UNK
     Dates: start: 1996, end: 2013
  14. DOCETAXEL SANOFI-AVENTIS [Suspect]
     Active Substance: DOCETAXEL
     Indication: LIPOSARCOMA
     Dosage: 88-120 MG, CYCLIC (04 CYCLES, EVERY THREE WEEKS)
     Dates: start: 20110216, end: 20110427
  15. DOCETAXEL SANOFI-AVENTIS [Suspect]
     Active Substance: DOCETAXEL
     Dosage: 120 MG, SINGLE
     Dates: start: 20110223, end: 20110223
  16. TAXOTERE [Suspect]
     Active Substance: DOCETAXEL
     Dosage: 120 MG, SINGLE
     Dates: start: 20110223, end: 20110223
  17. GEMZAR [Concomitant]
     Active Substance: GEMCITABINE HYDROCHLORIDE
     Indication: CHEMOTHERAPY
     Dosage: UNK
  18. SYNTHROID [Concomitant]
     Active Substance: LEVOTHYROXINE SODIUM
     Dosage: UNK
     Dates: start: 20110302, end: 20180417
  19. DOCETAXEL. [Suspect]
     Active Substance: DOCETAXEL
     Dosage: 120 MG, SINGLE
     Dates: start: 20110223, end: 20110223
  20. DOCETAXEL SANOFI-AVENTIS [Suspect]
     Active Substance: DOCETAXEL
     Dosage: 120 MG, SINGLE
     Dates: start: 20110316, end: 20110316
  21. TAXOTERE [Suspect]
     Active Substance: DOCETAXEL
     Dosage: 88 MG, SINGLE
     Dates: start: 20110406, end: 20110406
  22. DOCETAXEL. [Suspect]
     Active Substance: DOCETAXEL
     Dosage: 88 MG, SINGLE
     Dates: start: 20110406, end: 20110406
  23. SYNTHROID [Concomitant]
     Active Substance: LEVOTHYROXINE SODIUM
     Indication: HORMONE THERAPY
     Dosage: UNK
     Dates: start: 1996, end: 2013
  24. ESTRACE [Concomitant]
     Active Substance: ESTRADIOL
     Dosage: UNK

REACTIONS (6)
  - Madarosis [Not Recovered/Not Resolved]
  - Hair disorder [Not Recovered/Not Resolved]
  - Epilepsy [Unknown]
  - Hair colour changes [Not Recovered/Not Resolved]
  - Alopecia [Not Recovered/Not Resolved]
  - Hair texture abnormal [Not Recovered/Not Resolved]

NARRATIVE: CASE EVENT DATE: 20110306
